FAERS Safety Report 24740483 (Version 1)
Quarter: 2024Q4

REPORT INFORMATION
  Report Type: Spontaneous
  Country: US (occurrence: US)
  Receive Date: 20241216
  Receipt Date: 20241216
  Transmission Date: 20250115
  Serious: No
  Sender: GLAXOSMITHKLINE
  Company Number: US-GSK-US2024153935

PATIENT
  Sex: Male

DRUGS (7)
  1. NUCALA [Suspect]
     Active Substance: MEPOLIZUMAB
     Indication: Chronic sinusitis
     Dosage: UNK
  2. NUCALA [Suspect]
     Active Substance: MEPOLIZUMAB
     Indication: Sinus disorder
  3. NUCALA [Suspect]
     Active Substance: MEPOLIZUMAB
     Indication: Genital disorder
  4. NUCALA [Suspect]
     Active Substance: MEPOLIZUMAB
     Indication: Asthma
  5. NUCALA [Suspect]
     Active Substance: MEPOLIZUMAB
     Indication: Rhinitis allergic
  6. NUCALA [Suspect]
     Active Substance: MEPOLIZUMAB
     Indication: Dysgeusia
  7. NUCALA [Suspect]
     Active Substance: MEPOLIZUMAB
     Indication: Asthma

REACTIONS (1)
  - Off label use [Unknown]
